FAERS Safety Report 8221776-1 (Version None)
Quarter: 2012Q1

REPORT INFORMATION
  Report Type: 
  Country: None (occurrence: None)
  Receive Date: 20120320
  Receipt Date: 20120320
  Transmission Date: 20120608
  Serious: Yes (Other)
  Sender: FDA-Public Use
  Company Number: None

PATIENT
  Age: 50 Year
  Sex: Male
  Weight: 72.574 kg

DRUGS (1)
  1. CLINDAMYCIN [Suspect]
     Indication: GINGIVAL INFECTION
     Dosage: 150 MG EVERY 6 HOURS
     Route: 048
     Dates: start: 20110909, end: 20110913

REACTIONS (2)
  - CLOSTRIDIAL INFECTION [None]
  - GASTRIC DISORDER [None]
